FAERS Safety Report 6409448-7 (Version None)
Quarter: 2009Q4

REPORT INFORMATION
  Report Type: 
  Country: None (occurrence: None)
  Receive Date: 20091016
  Receipt Date: 20091012
  Transmission Date: 20100525
  Serious: Yes (Other)
  Sender: FDA-Public Use
  Company Number: CHPA2009US20170

PATIENT
  Age: 68 Year
  Sex: Female

DRUGS (1)
  1. BENEFIBER PLUS CALCIUM WITH WHEAT DEXTRIN(NCH)(CALCIUM CARBONATE, WHEA [Suspect]
     Indication: BOWEL MOVEMENT IRREGULARITY
     Dosage: 3 TSP, QD, ORAL
     Route: 048
     Dates: start: 20090101, end: 20091010

REACTIONS (2)
  - DIVERTICULUM [None]
  - MALAISE [None]
